FAERS Safety Report 13047535 (Version 2)
Quarter: 2018Q3

REPORT INFORMATION
  Report Type: Spontaneous
  Country: RU (occurrence: RU)
  Receive Date: 20161220
  Receipt Date: 20180919
  Transmission Date: 20181010
  Serious: Yes (Other)
  Sender: FDA-Public Use
  Company Number: RU-ASTRAZENECA-2016SF33471

PATIENT
  Age: 68 Year
  Sex: Female
  Weight: 91 kg

DRUGS (3)
  1. FORXIGA [Suspect]
     Active Substance: DAPAGLIFLOZIN
     Indication: TYPE 2 DIABETES MELLITUS
     Route: 048
     Dates: start: 201611, end: 201611
  2. CAPOTEN [Concomitant]
     Active Substance: CAPTOPRIL
  3. VALS [Concomitant]

REACTIONS (3)
  - Duodenal ulcer [Unknown]
  - Nausea [Unknown]
  - Blood pressure increased [Not Recovered/Not Resolved]

NARRATIVE: CASE EVENT DATE: 201611
